FAERS Safety Report 20032265 (Version 1)
Quarter: 2021Q4

REPORT INFORMATION
  Report Type: Spontaneous
  Country: CO (occurrence: CO)
  Receive Date: 20211103
  Receipt Date: 20211103
  Transmission Date: 20220303
  Serious: No
  Sender: FDA-Public Use
  Company Number: CO-PFIZER INC-2020381291

PATIENT
  Age: 5 Year
  Sex: Male

DRUGS (2)
  1. GENOTROPIN [Suspect]
     Active Substance: SOMATROPIN
     Indication: Hypochondroplasia
     Dosage: 0.6 MG , 1X/DAY (EVERY 24 HOURS)
     Route: 058
     Dates: start: 202003, end: 202006
  2. GENOTROPIN [Suspect]
     Active Substance: SOMATROPIN
     Indication: Bone disorder
     Dosage: 0.8 MG, DAILY
     Dates: start: 202006

REACTIONS (6)
  - Device information output issue [Unknown]
  - Drug dose omission by device [Unknown]
  - Laboratory test abnormal [Unknown]
  - Application site pain [Unknown]
  - Application site pruritus [Unknown]
  - Off label use [Unknown]

NARRATIVE: CASE EVENT DATE: 20200101
